FAERS Safety Report 5166756-8 (Version None)
Quarter: 2006Q4

REPORT INFORMATION
  Report Type: 
  Country: None (occurrence: None)
  Receive Date: 20061129
  Receipt Date: 20061123
  Transmission Date: 20070319
  Serious: Yes (Other)
  Sender: FDA-Public Use
  Company Number: GXKR2006GB07606

PATIENT
  Age: 85 Year
  Sex: Female

DRUGS (3)
  1. AMIODARONE HCL [Suspect]
     Indication: ATRIAL FIBRILLATION
     Dosage: 200 MG, ORAL
     Route: 048
     Dates: end: 20060502
  2. ADCAL-D3 (CALCIUM CARBONATE, COLECALCIFEROL) [Concomitant]
  3. ASPIRIN [Concomitant]

REACTIONS (3)
  - FALL [None]
  - MUSCULAR WEAKNESS [None]
  - PLEURAL EFFUSION [None]
